FAERS Safety Report 10997176 (Version 1)
Quarter: 2015Q2

REPORT INFORMATION
  Report Type: Spontaneous
  Country: FR (occurrence: FR)
  Receive Date: 20150408
  Receipt Date: 20150408
  Transmission Date: 20150821
  Serious: Yes (Hospitalization)
  Sender: FDA-Public Use
  Company Number: FR-SA-2015SA043562

PATIENT
  Age: 39 Year
  Sex: Male

DRUGS (15)
  1. PARACETAMOL [Suspect]
     Active Substance: ACETAMINOPHEN
     Route: 041
     Dates: start: 20150304, end: 20150306
  2. NEOSTIGMINE [Suspect]
     Active Substance: NEOSTIGMINE
     Route: 041
     Dates: start: 20150304, end: 20150304
  3. SERETIDE [Concomitant]
     Active Substance: FLUTICASONE FUROATE\SALMETEROL XINAFOATE
     Dosage: 1 DF, IN THE MORNING
     Route: 065
  4. LOVENOX [Suspect]
     Active Substance: ENOXAPARIN SODIUM
     Route: 058
     Dates: start: 20150304, end: 20150306
  5. TOPALGIC [Suspect]
     Active Substance: TRAMADOL
     Route: 041
     Dates: start: 20150304, end: 20150304
  6. EPHEDRINE [Suspect]
     Active Substance: EPHEDRINE
     Indication: GENERAL ANAESTHESIA
     Route: 041
     Dates: start: 20150304, end: 20150304
  7. SUFENTANIL [Suspect]
     Active Substance: SUFENTANIL
     Indication: GENERAL ANAESTHESIA
     Route: 041
     Dates: start: 20150304, end: 20150304
  8. ATROPINE [Suspect]
     Active Substance: ATROPINE
     Route: 041
     Dates: start: 20150304, end: 20150304
  9. MORPHINE [Suspect]
     Active Substance: MORPHINE
     Route: 041
     Dates: start: 20150304, end: 20150304
  10. PROPOFOL. [Suspect]
     Active Substance: PROPOFOL
     Indication: GENERAL ANAESTHESIA
     Route: 041
     Dates: start: 20150304, end: 20150304
  11. KETAMINE [Suspect]
     Active Substance: KETAMINE
     Indication: GENERAL ANAESTHESIA
     Route: 041
     Dates: start: 20150304, end: 20150304
  12. ACUPAN [Suspect]
     Active Substance: NEFOPAM HYDROCHLORIDE
     Route: 041
     Dates: start: 20150304, end: 20150306
  13. DROLEPTAN [Suspect]
     Active Substance: DROPERIDOL
     Route: 041
     Dates: start: 20150304, end: 20150306
  14. ATRACURIUM [Suspect]
     Active Substance: ATRACURIUM
     Indication: GENERAL ANAESTHESIA
     Route: 041
     Dates: start: 20150304, end: 20150304
  15. PHENYLEPHRINE [Suspect]
     Active Substance: PHENYLEPHRINE\PHENYLEPHRINE HYDROCHLORIDE
     Indication: GENERAL ANAESTHESIA
     Route: 041
     Dates: start: 20150304, end: 20150304

REACTIONS (2)
  - Thrombotic microangiopathy [Recovering/Resolving]
  - Acute kidney injury [Recovering/Resolving]

NARRATIVE: CASE EVENT DATE: 20150306
